FAERS Safety Report 15283862 (Version 1)
Quarter: 2018Q3

REPORT INFORMATION
  Report Type: Spontaneous
  Country: US (occurrence: US)
  Receive Date: 20180801
  Receipt Date: 20180801
  Transmission Date: 20181010
  Serious: Yes (Hospitalization, Other)
  Sender: FDA-Public Use
  Company Number: None

PATIENT
  Age: 66 Year
  Sex: Female
  Weight: 110.22 kg

DRUGS (10)
  1. LACTATED RINGERS SOLUTION [Suspect]
     Active Substance: CALCIUM CHLORIDE\POTASSIUM CHLORIDE\SODIUM CHLORIDE\SODIUM LACTATE
  2. HUMULIN R 500 [Concomitant]
  3. OTC ANTIHISTIMINE/DECONGESTANT [Concomitant]
  4. METOPROLOL TARTRATE. [Concomitant]
     Active Substance: METOPROLOL TARTRATE
  5. CLOPIDOGREL [Concomitant]
     Active Substance: CLOPIDOGREL BISULFATE
  6. PANTOPRAZOLE [Concomitant]
     Active Substance: PANTOPRAZOLE
  7. CARAFATE LIQUID [Concomitant]
  8. LEVOTHYROXINE. [Concomitant]
     Active Substance: LEVOTHYROXINE
  9. ATORVASTATIN [Concomitant]
     Active Substance: ATORVASTATIN
  10. ANTACID CALCIUM CARBONATE [Concomitant]

REACTIONS (10)
  - Blood pressure decreased [None]
  - Heart rate decreased [None]
  - Sedation [None]
  - Feeling abnormal [None]
  - Dry mouth [None]
  - Hypoaesthesia oral [None]
  - Infusion related reaction [None]
  - Pain in jaw [None]
  - Dyspnoea [None]
  - Speech disorder [None]

NARRATIVE: CASE EVENT DATE: 20180731
